FAERS Safety Report 5012007-4 (Version None)
Quarter: 2006Q2

REPORT INFORMATION
  Report Type: 
  Country: None (occurrence: None)
  Receive Date: 20060524
  Receipt Date: 20060515
  Transmission Date: 20061013
  Serious: Yes (Hospitalization)
  Sender: FDA-Public Use
  Company Number: 163-20785-06040506

PATIENT
  Age: 82 Year
  Sex: Male

DRUGS (12)
  1. THALOMID [Suspect]
     Indication: ANAEMIA
     Dosage: SEE IMAGE
     Route: 048
     Dates: start: 20060210, end: 20060301
  2. THALOMID [Suspect]
     Indication: MYELODYSPLASTIC SYNDROME
     Dosage: SEE IMAGE
     Route: 048
     Dates: start: 20060210, end: 20060301
  3. THALOMID [Suspect]
     Indication: ANAEMIA
     Dosage: SEE IMAGE
     Route: 048
     Dates: start: 20060401
  4. THALOMID [Suspect]
     Indication: MYELODYSPLASTIC SYNDROME
     Dosage: SEE IMAGE
     Route: 048
     Dates: start: 20060401
  5. ALBUTEROL [Concomitant]
  6. PREDNISONE TAB [Concomitant]
  7. FLOVENT [Concomitant]
  8. HYDROCHLOROTHIAZIDE [Concomitant]
  9. ATENOLOL [Concomitant]
  10. SEREVENT [Concomitant]
  11. ASA (ACETYSALICYLIC ACID) [Concomitant]
  12. IMDUR [Concomitant]

REACTIONS (5)
  - CONDITION AGGRAVATED [None]
  - CORONARY ARTERY DISEASE [None]
  - DIZZINESS [None]
  - DYSPNOEA EXERTIONAL [None]
  - FATIGUE [None]
